FAERS Safety Report 23100092 (Version 1)
Quarter: 2023Q4

REPORT INFORMATION
  Report Type: Spontaneous
  Country: CN (occurrence: CN)
  Receive Date: 20231024
  Receipt Date: 20231024
  Transmission Date: 20240110
  Serious: Yes (Other)
  Sender: FDA-Public Use
  Company Number: CN-PFIZER INC-PV202300170272

PATIENT
  Age: 9 Year
  Sex: Female
  Weight: 39.5 kg

DRUGS (11)
  1. METHOTREXATE SODIUM [Interacting]
     Active Substance: METHOTREXATE SODIUM
     Indication: Chemotherapy
     Dosage: 0.35 G AS PULSE DOSE,REMAINING DOSE WAS MAINTAINED
     Route: 041
  2. METHOTREXATE SODIUM [Interacting]
     Active Substance: METHOTREXATE SODIUM
     Dosage: 12 MG
     Route: 037
  3. METHOTREXATE SODIUM [Interacting]
     Active Substance: METHOTREXATE SODIUM
     Dosage: 0.28 AS PULSE DOSE,REMAINING DOSE WAS MAINTAINED
     Route: 041
  4. METHOTREXATE SODIUM [Interacting]
     Active Substance: METHOTREXATE SODIUM
     Dosage: 0.21 AS PULSE DOSE,REMAINING DOSE WAS MAINTAINED
     Route: 041
  5. OMEPRAZOLE [Interacting]
     Active Substance: OMEPRAZOLE
     Indication: Symptomatic treatment
     Dosage: 200 MG, 1X/DAY
     Route: 042
  6. OMEPRAZOLE [Interacting]
     Active Substance: OMEPRAZOLE
     Indication: Asthma
  7. GLYCINE\GLYCYRRHIZIN\METHIONINE [Interacting]
     Active Substance: GLYCINE\GLYCYRRHIZIN\METHIONINE
     Indication: Symptomatic treatment
     Dosage: 0.1 G, 1X/DAY
     Route: 041
  8. VORICONAZOLE [Interacting]
     Active Substance: VORICONAZOLE
     Indication: Anti-infective therapy
     Dosage: 0.2 G, 1X/DAY
     Route: 041
  9. MEROPENEM [Interacting]
     Active Substance: MEROPENEM
     Indication: Anti-infective therapy
     Dosage: 0.5 G, 3X/DAY
     Route: 041
  10. CYTARABINE [Interacting]
     Active Substance: CYTARABINE
     Indication: Chemotherapy
     Dosage: 35 MG
     Route: 037
  11. DEXAMETHASONE [Interacting]
     Active Substance: DEXAMETHASONE
     Indication: Chemotherapy
     Dosage: 5 MG
     Route: 037

REACTIONS (4)
  - Liver injury [Unknown]
  - Renal injury [Unknown]
  - Drug clearance increased [Unknown]
  - Drug interaction [Unknown]
